FAERS Safety Report 21926009 (Version 1)
Quarter: 2023Q1

REPORT INFORMATION
  Report Type: Spontaneous
  Country: GB (occurrence: GB)
  Receive Date: 20230130
  Receipt Date: 20230130
  Transmission Date: 20230418
  Serious: Yes (Other)
  Sender: FDA-Public Use
  Company Number: GB-MHRA-MED-202301181339551480-MKSDB

PATIENT
  Age: 70 Year
  Sex: Female

DRUGS (6)
  1. ATORVASTATIN [Suspect]
     Active Substance: ATORVASTATIN
     Indication: Product used for unknown indication
     Dosage: 80 MILLIGRAM DAILY; 80 MG ONCE A DAY AT NIGHT;
     Route: 065
     Dates: start: 20220720, end: 20230112
  2. APIXABAN [Concomitant]
     Active Substance: APIXABAN
     Indication: Adverse drug reaction
     Dates: start: 20221001
  3. APIXABAN [Concomitant]
     Active Substance: APIXABAN
     Indication: Ischaemic stroke
  4. APIXABAN [Concomitant]
     Active Substance: APIXABAN
     Indication: Arrhythmia
  5. BISOPROLOL FUMARATE [Concomitant]
     Active Substance: BISOPROLOL FUMARATE
     Indication: Adverse drug reaction
     Dates: start: 20221001
  6. BISOPROLOL FUMARATE [Concomitant]
     Active Substance: BISOPROLOL FUMARATE
     Indication: Palpitations

REACTIONS (1)
  - Constipation [Not Recovered/Not Resolved]

NARRATIVE: CASE EVENT DATE: 20221001
